FAERS Safety Report 15834806 (Version 1)
Quarter: 2019Q1

REPORT INFORMATION
  Report Type: Report from Study
  Country: US (occurrence: US)
  Receive Date: 20190116
  Receipt Date: 20190116
  Transmission Date: 20190417
  Serious: Yes (Hospitalization, Other)
  Sender: FDA-Public Use
  Company Number: US-PFIZER INC-2019018007

PATIENT
  Age: 21 Year
  Sex: Female
  Weight: 69.84 kg

DRUGS (8)
  1. CHOLBAM [Suspect]
     Active Substance: CHOLIC ACID
     Indication: XANTHOMATOSIS
     Dosage: 750 MG, 1X/DAY [TITER), 1X/DAY, ORAL]
     Route: 048
  2. MACROBID [Suspect]
     Active Substance: NITROFURANTOIN\NITROFURANTOIN MONOHYDRATE
     Indication: URINARY TRACT INFECTION
     Dosage: UNK
     Dates: start: 201809, end: 201809
  3. CHOLIC ACID [Suspect]
     Active Substance: CHOLIC ACID
     Indication: XANTHOMATOSIS
     Dosage: 750 MG, 1X/DAY
     Dates: start: 20140204, end: 201510
  4. CEPHALEXIN. [Suspect]
     Active Substance: CEPHALEXIN
     Indication: URINARY TRACT INFECTION
     Dosage: UNK
     Dates: start: 201807, end: 2018
  5. METRONIDAZOLE. [Suspect]
     Active Substance: METRONIDAZOLE
     Indication: URINARY TRACT INFECTION
     Dosage: 500 MG, 2X/DAY
     Dates: start: 20180917, end: 20180925
  6. NEXPLANON [Suspect]
     Active Substance: ETONOGESTREL
     Dosage: UNK
  7. VENLAFAXINE [Concomitant]
     Active Substance: VENLAFAXINE HYDROCHLORIDE
     Dosage: 37.5 MG, UNK
  8. CHOLBAM [Suspect]
     Active Substance: CHOLIC ACID
     Dosage: 750 MG, 1X/DAY
     Route: 048
     Dates: start: 201808

REACTIONS (5)
  - Urinary tract infection [Recovered/Resolved]
  - Dystonia [Not Recovered/Not Resolved]
  - Gastrooesophageal reflux disease [Recovered/Resolved]
  - Idiopathic intracranial hypertension [Unknown]
  - Dyspepsia [Recovered/Resolved]

NARRATIVE: CASE EVENT DATE: 201807
